FAERS Safety Report 9434185 (Version 1)
Quarter: 2013Q3

REPORT INFORMATION
  Report Type: Spontaneous
  Country: US (occurrence: None)
  Receive Date: 20130730
  Receipt Date: 20130730
  Transmission Date: 20140515
  Serious: Yes (Life-Threatening, Hospitalization)
  Sender: FDA-Public Use
  Company Number: None

PATIENT
  Age: 1 Day
  Sex: Male

DRUGS (2)
  1. INFASURF [Suspect]
     Indication: NEONATAL RESPIRATORY DISTRESS SYNDROME
     Dosage: X1 DOSE, INTRATRACHEALLY
     Dates: start: 20130717
  2. INFASURF [Suspect]
     Indication: NEONATAL RESPIRATORY DISTRESS SYNDROME
     Dosage: X1 DOSE, INTRATRACHEALLY
     Dates: start: 20130717

REACTIONS (6)
  - Heart rate decreased [None]
  - Oxygen saturation decreased [None]
  - Pulmonary interstitial emphysema syndrome [None]
  - Weaning failure [None]
  - Endotracheal intubation complication [None]
  - Foaming at mouth [None]
